FAERS Safety Report 21628625 (Version 1)
Quarter: 2022Q4

REPORT INFORMATION
  Report Type: Report from Study
  Country: GR (occurrence: GR)
  Receive Date: 20221122
  Receipt Date: 20221122
  Transmission Date: 20230113
  Serious: Yes (Hospitalization)
  Sender: FDA-Public Use
  Company Number: GR-TAKEDA-2022TUS086459

PATIENT
  Age: 34 Year
  Sex: Female

DRUGS (10)
  1. PARATHYROID HORMONE [Suspect]
     Active Substance: PARATHYROID HORMONE
     Indication: Hypoparathyroidism
     Dosage: 75 MILLIGRAM, QD
     Route: 050
     Dates: start: 20201021
  2. PARATHYROID HORMONE [Suspect]
     Active Substance: PARATHYROID HORMONE
     Indication: Hypoparathyroidism
     Dosage: 75 MILLIGRAM, QD
     Route: 050
     Dates: start: 20201021
  3. PARATHYROID HORMONE [Suspect]
     Active Substance: PARATHYROID HORMONE
     Indication: Hypoparathyroidism
     Dosage: 75 MILLIGRAM, QD
     Route: 050
     Dates: start: 20201021
  4. PARATHYROID HORMONE [Suspect]
     Active Substance: PARATHYROID HORMONE
     Dosage: 25 MILLIGRAM, QD
     Route: 050
     Dates: start: 20201021
  5. PARATHYROID HORMONE [Suspect]
     Active Substance: PARATHYROID HORMONE
     Dosage: 25 MILLIGRAM, QD
     Route: 050
     Dates: start: 20201021
  6. PARATHYROID HORMONE [Suspect]
     Active Substance: PARATHYROID HORMONE
     Dosage: 25 MILLIGRAM, QD
     Route: 050
     Dates: start: 20201021
  7. Calcioral [Concomitant]
     Indication: Calcium deficiency
     Dosage: 6 DOSAGE FORM, QD
  8. ONE-A-DAY NOS [Concomitant]
     Active Substance: MINERALS\VITAMINS
     Indication: Vitamin D deficiency
     Dosage: 2 DOSAGE FORM, QD
  9. TROFOCARD [Concomitant]
     Indication: Magnesium deficiency
     Dosage: 1000 MILLIGRAM, QD
  10. Presolone [Concomitant]
     Indication: Multiple allergies
     Dosage: 2 MILLIGRAM, QD

REACTIONS (3)
  - Blood calcium decreased [Recovered/Resolved]
  - Atrioventricular block [Not Recovered/Not Resolved]
  - Drug ineffective [Not Recovered/Not Resolved]
